FAERS Safety Report 6241047-2 (Version None)
Quarter: 2009Q2

REPORT INFORMATION
  Report Type: 
  Country: None (occurrence: None)
  Receive Date: 20090623
  Receipt Date: 20090617
  Transmission Date: 20091009
  Serious: Yes (Hospitalization)
  Sender: FDA-Public Use
  Company Number: US-JNJFOC-20090606709

PATIENT
  Age: 46 Year
  Sex: Female

DRUGS (2)
  1. MYLANTA ULTIMATE STRENGTH [Suspect]
     Indication: DRUG USE FOR UNKNOWN INDICATION
  2. ATIVAN [Interacting]
     Indication: DRUG USE FOR UNKNOWN INDICATION

REACTIONS (2)
  - DRUG INTERACTION [None]
  - LOSS OF CONSCIOUSNESS [None]
